FAERS Safety Report 16489648 (Version 2)
Quarter: 2019Q3

REPORT INFORMATION
  Report Type: Spontaneous
  Country: US (occurrence: US)
  Receive Date: 20190628
  Receipt Date: 20190802
  Transmission Date: 20191004
  Serious: No
  Sender: FDA-Public Use
  Company Number: US-PFIZER INC-2019276683

PATIENT
  Age: 78 Year
  Sex: Female

DRUGS (3)
  1. NEURONTIN [Suspect]
     Active Substance: GABAPENTIN
     Dosage: 100 MG, 3X/DAY (PRN 1 CAPSULE ORALLY THREE TIMES A DAY)
     Route: 048
  2. NEURONTIN [Suspect]
     Active Substance: GABAPENTIN
     Dosage: 100 MG, (PRN, 1 CAPSULE IN AM)
     Route: 048
  3. NEURONTIN [Suspect]
     Active Substance: GABAPENTIN
     Dosage: UNK, (2 TABLETS AT BEDTIME ORALLY AS DIRECTED)
     Route: 048

REACTIONS (2)
  - Drug hypersensitivity [Unknown]
  - Oral mucosal blistering [Unknown]
